FAERS Safety Report 10523899 (Version 1)
Quarter: 2014Q4

REPORT INFORMATION
  Report Type: Report from Study
  Country: CL (occurrence: CL)
  Receive Date: 20141017
  Receipt Date: 20141017
  Transmission Date: 20150528
  Serious: Yes (Other)
  Sender: FDA-Public Use
  Company Number: CL-UCBSA-2014014816

PATIENT
  Sex: Female

DRUGS (4)
  1. LEVETIRACETAM. [Suspect]
     Active Substance: LEVETIRACETAM
     Dosage: DOSE CHANGE DURING FIRST TRIMESTER
  2. LEVETIRACETAM. [Suspect]
     Active Substance: LEVETIRACETAM
     Indication: EPILEPSY
     Dosage: DAILY DOSE: 3000 (UNIT UNSPECIFIED)
  3. CLOBAZAM [Suspect]
     Active Substance: CLOBAZAM
     Indication: EPILEPSY
     Dosage: UNK
  4. CLOBAZAM [Suspect]
     Active Substance: CLOBAZAM
     Dosage: DOSE CHANGE DURING FIRST TRIMESTER

REACTIONS (2)
  - Abortion spontaneous [Unknown]
  - Pregnancy [Unknown]
